FAERS Safety Report 10223965 (Version 1)
Quarter: 2014Q2

REPORT INFORMATION
  Report Type: Spontaneous
  Country: US (occurrence: None)
  Receive Date: 20140605
  Receipt Date: 20140605
  Transmission Date: 20141212
  Serious: Yes (Death, Other)
  Sender: FDA-Public Use
  Company Number: ADR-2014-00945

PATIENT
  Age: 61 Year
  Sex: Male

DRUGS (1)
  1. LIORESAL INTRATHECAL [Suspect]
     Indication: MUSCLE SPASTICITY

REACTIONS (3)
  - Pulmonary fibrosis [None]
  - Disease complication [None]
  - Concomitant disease aggravated [None]
